FAERS Safety Report 9247858 (Version 2)
Quarter: 2013Q2

REPORT INFORMATION
  Report Type: Spontaneous
  Country: DE (occurrence: DE)
  Receive Date: 20130423
  Receipt Date: 20130502
  Transmission Date: 20140414
  Serious: Yes (Other)
  Sender: FDA-Public Use
  Company Number: DE-GALDERMA-DE13001211

PATIENT
  Age: 66 Year
  Sex: Female
  Weight: 65 kg

DRUGS (3)
  1. ORAYCEA [Suspect]
     Indication: ROSACEA
     Route: 048
     Dates: start: 201208, end: 201303
  2. SISARE [Concomitant]
     Indication: OSTEOPOROSIS
     Dosage: 8.92 MG/1.52 MG
     Route: 048
  3. ORTHOMOL ARTHRO PLUS [Concomitant]
     Indication: ARTHROPATHY
     Route: 048

REACTIONS (2)
  - Cerebrovascular accident [Not Recovered/Not Resolved]
  - Visual impairment [Not Recovered/Not Resolved]
